FAERS Safety Report 10417854 (Version 8)
Quarter: 2015Q3

REPORT INFORMATION
  Report Type: Report from Study
  Country: JP (occurrence: JP)
  Receive Date: 20140829
  Receipt Date: 20150824
  Transmission Date: 20151125
  Serious: Yes (Hospitalization, Other)
  Sender: FDA-Public Use
  Company Number: JP-ASTELLAS-2011JP008045

PATIENT
  Age: 42 Year
  Sex: Female

DRUGS (79)
  1. PREDONINE [Suspect]
     Active Substance: PREDNISOLONE\PREDNISOLONE ACETATE\PREDNISOLONE SODIUM SUCCINATE
     Indication: LUPUS NEPHRITIS
     Route: 048
     Dates: end: 20100630
  2. PREDONINE [Suspect]
     Active Substance: PREDNISOLONE\PREDNISOLONE ACETATE\PREDNISOLONE SODIUM SUCCINATE
     Route: 048
     Dates: start: 20120601, end: 20121227
  3. BAYASPIRIN [Suspect]
     Active Substance: ASPIRIN
     Indication: PROPHYLAXIS
     Route: 048
     Dates: start: 20100506, end: 20120628
  4. DIART [Suspect]
     Active Substance: AZOSEMIDE
     Route: 048
     Dates: start: 20130719, end: 20140730
  5. LIPOVAS [Concomitant]
     Active Substance: PRAVASTATIN SODIUM
     Indication: PRODUCT USED FOR UNKNOWN INDICATION
     Route: 048
     Dates: end: 20091223
  6. CELECOX [Concomitant]
     Active Substance: CELECOXIB
     Indication: MUSCULOSKELETAL PAIN
     Route: 048
     Dates: start: 20100506, end: 20130522
  7. LENDORMIN [Concomitant]
     Active Substance: BROTIZOLAM
     Indication: INSOMNIA
     Dosage: 0.25 MG, ONCE DAILY
     Route: 048
     Dates: start: 20100729, end: 20100915
  8. EMPYNASE P [Concomitant]
     Active Substance: PROTEIN
     Indication: BRONCHITIS
     Route: 048
     Dates: start: 20130221, end: 20130227
  9. LYRICA [Concomitant]
     Active Substance: PREGABALIN
     Indication: NEUROPATHY PERIPHERAL
     Route: 048
     Dates: start: 20120628, end: 20120725
  10. LYRICA [Concomitant]
     Active Substance: PREGABALIN
     Indication: HERPES ZOSTER
     Route: 048
     Dates: start: 20141127, end: 20141201
  11. NAUZELIN [Concomitant]
     Active Substance: DOMPERIDONE
     Indication: GASTROENTERITIS
     Route: 048
     Dates: start: 20121115, end: 20121119
  12. PARIET [Concomitant]
     Active Substance: RABEPRAZOLE SODIUM
     Indication: PROPHYLAXIS
     Route: 048
     Dates: start: 20140320
  13. TRAMCET [Concomitant]
     Active Substance: ACETAMINOPHEN\TRAMADOL
     Indication: LUPUS ENTERITIS
     Dosage: UNK UNK, UNKNOWN FREQ.
     Route: 048
     Dates: start: 20140317, end: 20140403
  14. BAYASPIRIN [Suspect]
     Active Substance: ASPIRIN
     Indication: CARDIOLIPIN ANTIBODY POSITIVE
     Route: 048
     Dates: start: 20140509
  15. IRBETAN [Concomitant]
     Active Substance: IRBESARTAN
     Indication: PRODUCT USED FOR UNKNOWN INDICATION
     Route: 048
     Dates: start: 20100506, end: 20130522
  16. HUSTAZOL                           /00398403/ [Concomitant]
     Indication: NASOPHARYNGITIS
     Route: 048
     Dates: start: 20130110, end: 20130119
  17. PL GRAN. [Concomitant]
     Active Substance: UNSPECIFIED INGREDIENT
     Route: 048
     Dates: start: 20141202, end: 20141209
  18. TACROLIMUS. [Suspect]
     Active Substance: TACROLIMUS
     Indication: LUPUS NEPHRITIS
     Route: 048
     Dates: start: 20090515, end: 20090923
  19. PREDONINE [Suspect]
     Active Substance: PREDNISOLONE\PREDNISOLONE ACETATE\PREDNISOLONE SODIUM SUCCINATE
     Route: 048
     Dates: start: 20121228, end: 20140316
  20. VITAMINS NOS [Suspect]
     Active Substance: VITAMINS
     Route: 048
     Dates: start: 20121116, end: 20140508
  21. PREMARIN [Suspect]
     Active Substance: ESTROGENS, CONJUGATED
     Indication: PROPHYLAXIS
     Route: 048
     Dates: start: 20110728, end: 20130613
  22. FLORID [Concomitant]
     Active Substance: MICONAZOLE
     Indication: ORAL CANDIDIASIS
     Route: 048
     Dates: start: 20091224, end: 20100120
  23. CELECOX [Concomitant]
     Active Substance: CELECOXIB
     Route: 048
     Dates: start: 20130523, end: 20140508
  24. ARTIST [Concomitant]
     Active Substance: CARVEDILOL
     Indication: PRODUCT USED FOR UNKNOWN INDICATION
     Route: 048
     Dates: start: 20110526, end: 20110928
  25. MYONAL                             /01071502/ [Concomitant]
     Indication: MUSCULOSKELETAL PAIN
     Route: 048
     Dates: start: 20111124, end: 20130320
  26. NEXIUM [Concomitant]
     Active Substance: ESOMEPRAZOLE MAGNESIUM
     Indication: ABDOMINAL PAIN UPPER
     Route: 048
     Dates: start: 20130509, end: 20130512
  27. AIMIX [Concomitant]
     Active Substance: AMLODIPINE BESYLATE\IRBESARTAN
     Indication: HYPERTENSION
     Dosage: UNK UNK, UNKNOWN FREQ.
     Route: 048
     Dates: start: 20130523, end: 20130620
  28. LOCHOL                             /01224502/ [Concomitant]
     Active Substance: FLUVASTATIN SODIUM
     Indication: HYPERLIPIDAEMIA
     Route: 048
     Dates: start: 20131122
  29. TACROLIMUS. [Suspect]
     Active Substance: TACROLIMUS
     Route: 048
     Dates: start: 20130419
  30. PERSANTIN [Suspect]
     Active Substance: DIPYRIDAMOLE
     Indication: PROPHYLAXIS
     Route: 048
     Dates: start: 20120629, end: 20120726
  31. ADALAT [Suspect]
     Active Substance: NIFEDIPINE
     Indication: HYPERTENSION
     Route: 048
     Dates: start: 20130124, end: 20130220
  32. BONALON [Concomitant]
     Active Substance: ALENDRONATE SODIUM
     Indication: PROPHYLAXIS
     Route: 048
  33. MEILAX [Concomitant]
     Active Substance: ETHYL LOFLAZEPATE
     Indication: PROPHYLAXIS
     Route: 048
     Dates: end: 20100602
  34. JUVELA N [Concomitant]
     Active Substance: TOCOPHERYL NICOTINATE, D-.ALPHA.
     Indication: PROPHYLAXIS
     Route: 048
     Dates: start: 20091224
  35. NATRIX [Concomitant]
     Active Substance: INDAPAMIDE
     Indication: PRODUCT USED FOR UNKNOWN INDICATION
     Route: 048
     Dates: start: 20111222, end: 20140730
  36. VENA                               /00000402/ [Concomitant]
     Indication: NASOPHARYNGITIS
     Route: 048
     Dates: start: 20130110, end: 20130119
  37. AMLODIPINE                         /00972402/ [Concomitant]
     Active Substance: AMLODIPINE BESYLATE
     Indication: HYPOTENSION
     Route: 048
     Dates: start: 20130221, end: 20130522
  38. AMLODIPINE                         /00972402/ [Concomitant]
     Active Substance: AMLODIPINE BESYLATE
     Indication: HYPERTENSION
     Route: 048
     Dates: start: 20130621, end: 20130919
  39. PL GRAN. [Concomitant]
     Active Substance: UNSPECIFIED INGREDIENT
     Route: 048
     Dates: start: 20131220, end: 20131224
  40. CRAVIT [Concomitant]
     Active Substance: LEVOFLOXACIN
     Indication: BRONCHITIS
     Route: 048
     Dates: start: 20130221, end: 20130227
  41. HYPEN                              /00613801/ [Concomitant]
     Active Substance: ETODOLAC
     Indication: LUPUS ENTERITIS
     Route: 048
     Dates: start: 20140316, end: 20140317
  42. GASLON [Concomitant]
     Active Substance: IRSOGLADINE MALEATE
     Indication: LUPUS ENTERITIS
     Route: 048
     Dates: start: 20140317, end: 20140403
  43. NERIPROCT [Concomitant]
     Indication: LUPUS ENTERITIS
     Dosage: UNK UNK, UNKNOWN FREQ.
     Route: 054
     Dates: start: 20140321, end: 20140403
  44. PREDONINE [Suspect]
     Active Substance: PREDNISOLONE\PREDNISOLONE ACETATE\PREDNISOLONE SODIUM SUCCINATE
     Indication: LUPUS ENTERITIS
     Route: 048
     Dates: start: 20100701, end: 20101208
  45. PRAVASTATIN [Suspect]
     Active Substance: PRAVASTATIN\PRAVASTATIN SODIUM
     Route: 048
     Dates: start: 20131018, end: 20131121
  46. AMLODIPINE                         /00972402/ [Concomitant]
     Active Substance: AMLODIPINE BESYLATE
     Dosage: 5.0 MG, ONCE DAILY
     Route: 048
     Dates: start: 20130920
  47. PL GRAN. [Concomitant]
     Active Substance: UNSPECIFIED INGREDIENT
     Indication: BRONCHITIS
     Route: 048
     Dates: start: 20130221, end: 20130227
  48. TRAMCET [Concomitant]
     Active Substance: ACETAMINOPHEN\TRAMADOL
     Dosage: UNK UNK, UNKNOWN FREQ.
     Route: 048
     Dates: start: 20141110, end: 20141111
  49. TACROLIMUS. [Suspect]
     Active Substance: TACROLIMUS
     Route: 048
     Dates: start: 20090924, end: 20130221
  50. PREDONINE [Suspect]
     Active Substance: PREDNISOLONE\PREDNISOLONE ACETATE\PREDNISOLONE SODIUM SUCCINATE
     Route: 048
     Dates: start: 20140703
  51. PRAVASTATIN [Suspect]
     Active Substance: PRAVASTATIN\PRAVASTATIN SODIUM
     Indication: PRODUCT USED FOR UNKNOWN INDICATION
     Route: 048
     Dates: start: 20091224, end: 20100602
  52. VITAMINS NOS [Suspect]
     Active Substance: VITAMINS
     Indication: PROPHYLAXIS
     Route: 048
     Dates: start: 20120727, end: 20120823
  53. DIART [Suspect]
     Active Substance: AZOSEMIDE
     Indication: OEDEMA PERIPHERAL
     Route: 048
     Dates: start: 20130613, end: 20130718
  54. ZETIA [Concomitant]
     Active Substance: EZETIMIBE
     Indication: PRODUCT USED FOR UNKNOWN INDICATION
     Route: 048
     Dates: start: 20100225
  55. IRBETAN [Concomitant]
     Active Substance: IRBESARTAN
     Route: 048
     Dates: start: 20140605
  56. SOLANTAL [Concomitant]
     Active Substance: TIARAMIDE
     Indication: BRONCHITIS
     Route: 048
     Dates: start: 20130221, end: 20130227
  57. LAC-B [Concomitant]
     Active Substance: BIFIDOBACTERIUM SPP.
     Indication: GASTROENTERITIS
     Route: 048
     Dates: start: 20121115, end: 20121119
  58. FEBURIC [Concomitant]
     Active Substance: FEBUXOSTAT
     Indication: HYPERURICAEMIA
     Route: 048
     Dates: start: 20130822, end: 20130919
  59. PREDONINE [Suspect]
     Active Substance: PREDNISOLONE\PREDNISOLONE ACETATE\PREDNISOLONE SODIUM SUCCINATE
     Route: 048
     Dates: start: 20101209, end: 20120531
  60. PREDONINE [Suspect]
     Active Substance: PREDNISOLONE\PREDNISOLONE ACETATE\PREDNISOLONE SODIUM SUCCINATE
     Route: 048
     Dates: start: 20140509, end: 20140702
  61. PRAVASTATIN [Suspect]
     Active Substance: PRAVASTATIN\PRAVASTATIN SODIUM
     Route: 048
     Dates: start: 20100603, end: 20130321
  62. VITAMINS NOS [Suspect]
     Active Substance: VITAMINS
     Route: 048
     Dates: start: 20120824, end: 20121115
  63. PREMARIN [Suspect]
     Active Substance: ESTROGENS, CONJUGATED
     Indication: MENOPAUSAL SYMPTOMS
  64. CELECOX [Concomitant]
     Active Substance: CELECOXIB
     Route: 048
     Dates: start: 20141113, end: 20141120
  65. ITORAT [Concomitant]
     Indication: ONYCHOMYCOSIS
     Route: 048
     Dates: start: 20100603, end: 20141217
  66. CLARITH [Concomitant]
     Active Substance: CLARITHROMYCIN
     Indication: NASOPHARYNGITIS
     Route: 048
     Dates: start: 20130110, end: 20130119
  67. EMPYNASE P [Concomitant]
     Active Substance: PROTEIN
     Indication: NASOPHARYNGITIS
     Route: 048
     Dates: start: 20130110, end: 20130119
  68. MUCOSTA [Concomitant]
     Active Substance: REBAMIPIDE
     Indication: GASTROENTERITIS
     Route: 048
     Dates: start: 20121115, end: 20121119
  69. ZOVIRAX [Concomitant]
     Active Substance: ACYCLOVIR
     Indication: HERPES ZOSTER
     Route: 048
     Dates: start: 20141117, end: 20141127
  70. TACROLIMUS. [Suspect]
     Active Substance: TACROLIMUS
     Route: 048
     Dates: start: 20130222, end: 20130418
  71. PREDONINE [Suspect]
     Active Substance: PREDNISOLONE\PREDNISOLONE ACETATE\PREDNISOLONE SODIUM SUCCINATE
     Route: 048
     Dates: start: 20140317, end: 20140320
  72. PREDONINE [Suspect]
     Active Substance: PREDNISOLONE\PREDNISOLONE ACETATE\PREDNISOLONE SODIUM SUCCINATE
     Route: 048
     Dates: start: 20140321, end: 20140508
  73. NU-LOTAN [Concomitant]
     Active Substance: LOSARTAN POTASSIUM
     Indication: PRODUCT USED FOR UNKNOWN INDICATION
     Route: 048
     Dates: end: 20100331
  74. NU-LOTAN [Concomitant]
     Active Substance: LOSARTAN POTASSIUM
     Route: 048
     Dates: start: 20100401, end: 20100505
  75. CONIEL [Concomitant]
     Active Substance: BENIDIPINE HYDROCHLORIDE
     Indication: PRODUCT USED FOR UNKNOWN INDICATION
     Route: 048
     Dates: start: 20111222, end: 20130123
  76. HUSTAZOL                           /00398403/ [Concomitant]
     Route: 048
     Dates: start: 20141202, end: 20141209
  77. PL GRAN. [Concomitant]
     Active Substance: UNSPECIFIED INGREDIENT
     Indication: NASOPHARYNGITIS
     Route: 048
     Dates: start: 20130110, end: 20130119
  78. SOLANTAL [Concomitant]
     Active Substance: TIARAMIDE
     Indication: NASOPHARYNGITIS
     Route: 048
     Dates: start: 20130110, end: 20130119
  79. CALONAL [Concomitant]
     Active Substance: ACETAMINOPHEN
     Indication: LUPUS ENTERITIS
     Route: 048
     Dates: start: 20140321, end: 20140403

REACTIONS (26)
  - Oral candidiasis [Recovered/Resolved]
  - Proteinuria [Recovered/Resolved]
  - Nephropathy [Recovered/Resolved]
  - Herpes zoster [Recovering/Resolving]
  - Dermatophytosis of nail [Recovered/Resolved]
  - Hyperlipidaemia [Recovering/Resolving]
  - Headache [Recovered/Resolved]
  - Neuropathy peripheral [Recovered/Resolved]
  - Hypertension [Recovering/Resolving]
  - Cardiolipin antibody positive [Not Recovered/Not Resolved]
  - Menopausal symptoms [Recovering/Resolving]
  - Oedema peripheral [Recovered/Resolved]
  - Haemorrhage subcutaneous [Recovered/Resolved]
  - Bronchitis [Recovering/Resolving]
  - Musculoskeletal pain [Recovering/Resolving]
  - Gastroenteritis [Recovered/Resolved]
  - Hyperuricaemia [Recovered/Resolved]
  - Hypertension [Recovering/Resolving]
  - Myalgia [Recovered/Resolved]
  - Lupus enteritis [Recovered/Resolved]
  - Angina pectoris [Recovering/Resolving]
  - Insomnia [Recovering/Resolving]
  - Nasopharyngitis [Recovering/Resolving]
  - Abdominal pain upper [Recovered/Resolved]
  - Hypotension [Recovering/Resolving]
  - Hypotension [Recovering/Resolving]

NARRATIVE: CASE EVENT DATE: 20091220
